FAERS Safety Report 19614984 (Version 2)
Quarter: 2021Q3

REPORT INFORMATION
  Report Type: Report from Study
  Country: CO (occurrence: CO)
  Receive Date: 20210727
  Receipt Date: 20210820
  Transmission Date: 20211014
  Serious: Yes (Hospitalization, Other)
  Sender: FDA-Public Use
  Company Number: CO-ASTELLAS-2021US010046

PATIENT
  Age: 65 Year
  Sex: Female

DRUGS (8)
  1. DILTIAZEM. [Concomitant]
     Active Substance: DILTIAZEM
     Indication: PRODUCT USED FOR UNKNOWN INDICATION
     Route: 065
  2. TACROLIMUS. [Suspect]
     Active Substance: TACROLIMUS
     Route: 048
     Dates: start: 202107
  3. TACROLIMUS. [Suspect]
     Active Substance: TACROLIMUS
     Indication: RENAL TRANSPLANT
     Route: 048
     Dates: start: 20191205
  4. MAGNESIUM [Concomitant]
     Active Substance: MAGNESIUM
     Indication: PRODUCT USED FOR UNKNOWN INDICATION
     Route: 065
  5. PREDNISOLONE. [Concomitant]
     Active Substance: PREDNISOLONE
     Indication: PRODUCT USED FOR UNKNOWN INDICATION
     Route: 065
  6. ATORVASTATIN [Concomitant]
     Active Substance: ATORVASTATIN
     Indication: PRODUCT USED FOR UNKNOWN INDICATION
     Route: 065
  7. MYCOPHENOLATE [Concomitant]
     Active Substance: MYCOPHENOLIC ACID
     Indication: PRODUCT USED FOR UNKNOWN INDICATION
     Route: 065
  8. TACROLIMUS. [Suspect]
     Active Substance: TACROLIMUS
     Route: 048
     Dates: end: 202107

REACTIONS (13)
  - Cough [Recovering/Resolving]
  - Nasopharyngitis [Recovered/Resolved]
  - Dizziness [Not Recovered/Not Resolved]
  - Pneumonia [Recovered/Resolved with Sequelae]
  - Bronchitis [Recovered/Resolved]
  - Weight increased [Not Recovered/Not Resolved]
  - Productive cough [Recovering/Resolving]
  - Dizziness exertional [Recovered/Resolved]
  - Dizziness postural [Not Recovered/Not Resolved]
  - Abscess [Recovering/Resolving]
  - Ear discomfort [Not Recovered/Not Resolved]
  - Muscular weakness [Recovered/Resolved]
  - Pain [Recovered/Resolved]

NARRATIVE: CASE EVENT DATE: 2019
